FAERS Safety Report 11784303 (Version 1)
Quarter: 2015Q4

REPORT INFORMATION
  Report Type: Spontaneous
  Country: KR (occurrence: KR)
  Receive Date: 20151128
  Receipt Date: 20151128
  Transmission Date: 20160305
  Serious: Yes (Hospitalization)
  Sender: FDA-Public Use
  Company Number: KR-AMGEN-KORCT2015127010

PATIENT
  Age: 63 Year
  Sex: Male
  Weight: 63.5 kg

DRUGS (14)
  1. G-LASTA [Suspect]
     Active Substance: PEGFILGRASTIM
     Indication: FEBRILE NEUTROPENIA
     Dosage: 6 MG, 1X/3WEEKS
     Route: 058
     Dates: start: 20150123
  2. CYCLOPHOSPHAMIDE. [Concomitant]
     Active Substance: CYCLOPHOSPHAMIDE
     Dosage: 973.13 MG, UNK
     Route: 042
     Dates: start: 20150216, end: 20150216
  3. PREDNISOLONE. [Concomitant]
     Active Substance: PREDNISOLONE
     Dosage: 60 MG, UNK
     Route: 048
     Dates: start: 20150122, end: 20150122
  4. PREDNISOLONE. [Concomitant]
     Active Substance: PREDNISOLONE
     Dosage: 60 MG, UNK
     Route: 042
     Dates: start: 20150216, end: 20150216
  5. G-LASTA [Suspect]
     Active Substance: PEGFILGRASTIM
     Dosage: 6 MG, 1X/3WEEKS
     Route: 058
     Dates: start: 20150217
  6. RITUXIMAB [Concomitant]
     Active Substance: RITUXIMAB
     Dosage: 548.75 MG, UNK
     Route: 042
     Dates: start: 20150216
  7. DOXORUBICIN [Concomitant]
     Active Substance: DOXORUBICIN
     Dosage: 63.75 MG, UNK
     Route: 042
     Dates: start: 20150122, end: 20150122
  8. DOXORUBICIN [Concomitant]
     Active Substance: DOXORUBICIN
     Dosage: 64.88 MG, UNK
     Route: 042
     Dates: start: 20150216, end: 20150216
  9. VINCRISTINE [Concomitant]
     Active Substance: VINCRISTINE
     Dosage: 1.93 MG, UNK
     Route: 042
     Dates: start: 20150122, end: 20150122
  10. VINCRISTINE [Concomitant]
     Active Substance: VINCRISTINE
     Dosage: 1.96 MG, UNK
     Route: 042
     Dates: start: 20150216, end: 20150216
  11. RITUXIMAB [Concomitant]
     Active Substance: RITUXIMAB
     Dosage: 137.5 MG, UNK
     Route: 042
     Dates: start: 20150122
  12. CLOPIDOGREL [Concomitant]
     Active Substance: CLOPIDOGREL BISULFATE
     Dosage: 75 MG, UNK
     Route: 048
  13. VYTORIN [Concomitant]
     Active Substance: EZETIMIBE\SIMVASTATIN
     Dosage: 10 MG, UNK
     Route: 048
  14. CYCLOPHOSPHAMIDE. [Concomitant]
     Active Substance: CYCLOPHOSPHAMIDE
     Dosage: 956.25 MG, UNK
     Route: 042
     Dates: start: 20150122, end: 20150122

REACTIONS (1)
  - Cholecystitis acute [Recovered/Resolved]

NARRATIVE: CASE EVENT DATE: 20150228
